FAERS Safety Report 5204614-0 (Version None)
Quarter: 2007Q1

REPORT INFORMATION
  Report Type: 
  Country: None (occurrence: None)
  Receive Date: 20070110
  Receipt Date: 20060512
  Transmission Date: 20070707
  Serious: No
  Sender: FDA-Public Use
  Company Number: US-BRISTOL-MYERS SQUIBB COMPANY-13387857

PATIENT
  Age: 54 Year
  Sex: Male
  Weight: 118 kg

DRUGS (8)
  1. ABILIFY [Suspect]
     Indication: BIPOLAR DISORDER
     Route: 048
     Dates: start: 20050401
  2. ALLOPURINOL SODIUM [Concomitant]
  3. ASPIRIN [Concomitant]
     Dosage: DURATION OF THERAPY:  MANY YEARS
  4. ASACOL [Concomitant]
  5. VITAMIN CAP [Concomitant]
  6. OMEGA [Concomitant]
  7. FLAXSEED OIL [Concomitant]
  8. ZEMPLAR [Concomitant]

REACTIONS (1)
  - URINARY RETENTION [None]
